FAERS Safety Report 7206503-9 (Version None)
Quarter: 2011Q1

REPORT INFORMATION
  Report Type: 
  Country: None (occurrence: None)
  Receive Date: 20110103
  Receipt Date: 20101227
  Transmission Date: 20110831
  Serious: Yes (Hospitalization)
  Sender: FDA-Public Use
  Company Number: FR-SANOFI-AVENTIS-2010SA077940

PATIENT
  Age: 68 Year
  Sex: Male

DRUGS (10)
  1. MOPRAL [Suspect]
     Dates: start: 20101028, end: 20101108
  2. LOVENOX [Suspect]
     Indication: THROMBOSIS PROPHYLAXIS
     Dates: start: 20101028, end: 20101107
  3. SPIRONOLACTONE [Suspect]
     Dates: start: 20101028, end: 20101108
  4. DIAMICRON [Concomitant]
  5. XANAX [Concomitant]
     Dates: start: 20101102, end: 20101105
  6. DOLIPRANE [Suspect]
     Dates: start: 20101028, end: 20101108
  7. PRAVASTATIN [Concomitant]
  8. BUMEX [Suspect]
     Dates: start: 20101028, end: 20101108
  9. TOPALGIC [Concomitant]
     Dates: start: 20101029, end: 20101104
  10. NOVORAPID [Suspect]
     Route: 058
     Dates: start: 20101028, end: 20101108

REACTIONS (5)
  - EOSINOPHILIA [None]
  - CREATININE RENAL CLEARANCE DECREASED [None]
  - CYTOLYTIC HEPATITIS [None]
  - THROMBOCYTOPENIA [None]
  - RASH MACULO-PAPULAR [None]
